FAERS Safety Report 18724838 (Version 1)
Quarter: 2021Q1

REPORT INFORMATION
  Report Type: Spontaneous
  Country: US (occurrence: US)
  Receive Date: 20210111
  Receipt Date: 20210111
  Transmission Date: 20210419
  Serious: Yes (Hospitalization)
  Sender: FDA-Public Use
  Company Number: None

PATIENT
  Sex: Female

DRUGS (27)
  1. METOPROL TAR [Concomitant]
  2. ESBRIET [Suspect]
     Active Substance: PIRFENIDONE
     Indication: IDIOPATHIC PULMONARY FIBROSIS
     Dosage: ?          OTHER DOSE:3 TABS ;?
     Route: 048
     Dates: start: 20180106
  3. AZELASTINE. [Concomitant]
     Active Substance: AZELASTINE HYDROCHLORIDE
  4. HYDROCO/APAP [Concomitant]
     Active Substance: ACETAMINOPHEN\HYDROCODONE
  5. MONTELUKAST [Concomitant]
     Active Substance: MONTELUKAST SODIUM
  6. ROSUVASTATIN. [Concomitant]
     Active Substance: ROSUVASTATIN
  7. ATENOLOL. [Concomitant]
     Active Substance: ATENOLOL
  8. BENZONATATE. [Concomitant]
     Active Substance: BENZONATATE
  9. FOLBEE [Concomitant]
     Active Substance: CYANOCOBALAMIN\FOLIC ACID\PYRIDOXINE HYDROCHLORIDE
  10. METOLAZONE. [Concomitant]
     Active Substance: METOLAZONE
  11. METRONIDAZOL [Concomitant]
     Active Substance: METRONIDAZOLE
  12. OMEPRAZOLE. [Concomitant]
     Active Substance: OMEPRAZOLE
  13. TRELEGY ELLIPT [Concomitant]
  14. CYCLOBENZAPR [Concomitant]
     Active Substance: CYCLOBENZAPRINE
  15. DILTIAZEM ER [Concomitant]
     Active Substance: DILTIAZEM
  16. ELIQUIS [Concomitant]
     Active Substance: APIXABAN
  17. ROPINIROLE. [Concomitant]
     Active Substance: ROPINIROLE
  18. BUSPIRONE [Concomitant]
     Active Substance: BUSPIRONE HYDROCHLORIDE
  19. JANUMET XR [Concomitant]
     Active Substance: METFORMIN HYDROCHLORIDE\SITAGLIPTIN PHOSPHATE
  20. LOSARTAN POT [Concomitant]
     Active Substance: LOSARTAN POTASSIUM
  21. LUMIGAN [Concomitant]
     Active Substance: BIMATOPROST
  22. ONDANSETRON [Concomitant]
     Active Substance: ONDANSETRON
  23. LIDOCAINE. [Concomitant]
     Active Substance: LIDOCAINE
  24. AZEL/FLUTIC SPR [Concomitant]
  25. BUMETANIDE. [Concomitant]
     Active Substance: BUMETANIDE
  26. URSODIOL. [Concomitant]
     Active Substance: URSODIOL
  27. LEVOFLOXACIN. [Concomitant]
     Active Substance: LEVOFLOXACIN

REACTIONS (3)
  - Therapy interrupted [None]
  - Nausea [None]
  - Diarrhoea [None]
